FAERS Safety Report 17732744 (Version 1)
Quarter: 2020Q2

REPORT INFORMATION
  Report Type: Spontaneous
  Country: FR (occurrence: FR)
  Receive Date: 20200501
  Receipt Date: 20200501
  Transmission Date: 20200714
  Serious: Yes (Other)
  Sender: FDA-Public Use
  Company Number: NVSC2020FR112949

PATIENT
  Sex: Female

DRUGS (1)
  1. TEGRETOL [Suspect]
     Active Substance: CARBAMAZEPINE
     Indication: ANXIETY
     Dosage: 2 DF, QD (APPROXIMATELY 10 YEARS)
     Route: 065

REACTIONS (5)
  - Erythema [Unknown]
  - Photosensitivity reaction [Unknown]
  - Product use in unapproved indication [Unknown]
  - Uterine cancer [Unknown]
  - Melanocytic naevus [Unknown]
